FAERS Safety Report 8184349-5 (Version None)
Quarter: 2012Q1

REPORT INFORMATION
  Report Type: 
  Country: None (occurrence: None)
  Receive Date: 20120305
  Receipt Date: 20120221
  Transmission Date: 20120608
  Serious: No
  Sender: FDA-Public Use
  Company Number: CA-ELI_LILLY_AND_COMPANY-CA201202005860

PATIENT
  Sex: Female

DRUGS (3)
  1. CYMBALTA [Suspect]
     Dosage: 30 MG, UNKNOWN
  2. CYMBALTA [Suspect]
     Dosage: 60 MG, UNKNOWN
  3. ANTIHYPERTENSIVES [Concomitant]
     Indication: HYPERTENSION

REACTIONS (1)
  - ALANINE AMINOTRANSFERASE INCREASED [None]
